FAERS Safety Report 10379548 (Version 1)
Quarter: 2014Q3

REPORT INFORMATION
  Report Type: Report from Study
  Country: US (occurrence: US)
  Receive Date: 20140812
  Receipt Date: 20140812
  Transmission Date: 20150326
  Serious: Yes (Hospitalization)
  Sender: FDA-Public Use
  Company Number: US-PFIZER INC-2014214954

PATIENT
  Age: 2 Year
  Sex: Male

DRUGS (1)
  1. DEXTROMETHORPHAN HBR [Suspect]
     Active Substance: DEXTROMETHORPHAN HYDROBROMIDE
     Dosage: UNK
     Route: 048

REACTIONS (2)
  - Mental status changes [Unknown]
  - Accidental overdose [Unknown]
